FAERS Safety Report 7109670-0 (Version None)
Quarter: 2010Q4

REPORT INFORMATION
  Report Type: 
  Country: None (occurrence: None)
  Receive Date: 20101115
  Receipt Date: 20101115
  Transmission Date: 20110411
  Serious: Yes (Hospitalization)
  Sender: FDA-Public Use
  Company Number: None

PATIENT
  Sex: Male
  Weight: 68.7 kg

DRUGS (6)
  1. GEMZAR [Suspect]
     Indication: PANCREATIC CARCINOMA METASTATIC
     Dosage: 1395 MG ON 11/4/10 (750MG/M2) WEEKLY, 3 ON, 1 OFF 042-IV INFUSION
     Route: 042
     Dates: start: 20101007
  2. GEMZAR [Suspect]
     Indication: PANCREATIC CARCINOMA METASTATIC
     Dosage: 1395 MG ON 11/4/10 (750MG/M2) WEEKLY, 3 ON, 1 OFF 042-IV INFUSION
     Route: 042
     Dates: start: 20101014
  3. GEMZAR [Suspect]
     Indication: PANCREATIC CARCINOMA METASTATIC
     Dosage: 1395 MG ON 11/4/10 (750MG/M2) WEEKLY, 3 ON, 1 OFF 042-IV INFUSION
     Route: 042
     Dates: start: 20101021
  4. GEMZAR [Suspect]
     Indication: PANCREATIC CARCINOMA METASTATIC
     Dosage: 1395 MG ON 11/4/10 (750MG/M2) WEEKLY, 3 ON, 1 OFF 042-IV INFUSION
     Route: 042
     Dates: start: 20101104
  5. GEMZAR [Suspect]
  6. PAZOPANIB 200 MG TABLETS GLAXO SMITH KLINE [Suspect]
     Dosage: 800 MG PAZOPANIB DAILY 047-PO
     Route: 048
     Dates: start: 20101007, end: 20101108

REACTIONS (7)
  - BLOOD UREA INCREASED [None]
  - DIZZINESS [None]
  - HAEMOGLOBIN DECREASED [None]
  - NAUSEA [None]
  - THROMBOCYTOPENIA [None]
  - UPPER GASTROINTESTINAL HAEMORRHAGE [None]
  - VOMITING [None]
